FAERS Safety Report 10514989 (Version 2)
Quarter: 2015Q1

REPORT INFORMATION
  Report Type: Spontaneous
  Country: DE (occurrence: DE)
  Receive Date: 20141013
  Receipt Date: 20150130
  Transmission Date: 20150720
  Serious: Yes (Hospitalization, Other)
  Sender: FDA-Public Use
  Company Number: PHHY2014DE131638

PATIENT
  Sex: Male
  Weight: 87 kg

DRUGS (2)
  1. CORTISONE [Concomitant]
     Active Substance: CORTISONE\HYDROCORTISONE
     Indication: PRODUCT USED FOR UNKNOWN INDICATION
     Route: 065
  2. GILENYA [Suspect]
     Active Substance: FINGOLIMOD HYDROCHLORIDE
     Indication: MULTIPLE SCLEROSIS
     Dosage: 0.5 MG, QD (DAILY)
     Route: 048
     Dates: start: 20140610

REACTIONS (13)
  - Nausea [Unknown]
  - Vomiting [Unknown]
  - C-reactive protein increased [Recovered/Resolved]
  - Lymphocyte count decreased [Unknown]
  - Blood bilirubin increased [Recovered/Resolved with Sequelae]
  - Aspartate aminotransferase increased [Recovered/Resolved]
  - Klebsiella infection [Recovered/Resolved with Sequelae]
  - White blood cell count decreased [Recovered/Resolved]
  - Pyrexia [Unknown]
  - Gamma-glutamyltransferase increased [Recovered/Resolved]
  - Liver abscess [Recovered/Resolved with Sequelae]
  - Alanine aminotransferase increased [Not Recovered/Not Resolved]
  - White blood cell count increased [Recovered/Resolved]

NARRATIVE: CASE EVENT DATE: 201406
